FAERS Safety Report 14551133 (Version 1)
Quarter: 2018Q1

REPORT INFORMATION
  Report Type: Report from Study
  Country: None (occurrence: DE)
  Receive Date: 20180220
  Receipt Date: 20180220
  Transmission Date: 20180509
  Serious: Yes (Hospitalization)
  Sender: FDA-Public Use
  Company Number: DE-ABBVIE-18K-062-2261875-00

PATIENT
  Age: 71 Year
  Sex: Female

DRUGS (3)
  1. DUODOPA [Suspect]
     Active Substance: CARBIDOPA\LEVODOPA
     Indication: PARKINSON^S DISEASE
     Dosage: MD:4.5ML CRD: 3.2ML/H CRD2:3.5 ML/H CRN: 3.0ML/H ED: 1.5ML
     Route: 050
     Dates: start: 20140526
  2. CAUSTICUM HAHNEMANNI [Concomitant]
     Indication: PRODUCT USED FOR UNKNOWN INDICATION
  3. RIVASTIGMIN [Concomitant]
     Active Substance: RIVASTIGMINE
     Indication: PRODUCT USED FOR UNKNOWN INDICATION

REACTIONS (3)
  - Screaming [Not Recovered/Not Resolved]
  - Crying [Not Recovered/Not Resolved]
  - Listless [Not Recovered/Not Resolved]

NARRATIVE: CASE EVENT DATE: 20180217
